FAERS Safety Report 6492597-5 (Version None)
Quarter: 2009Q4

REPORT INFORMATION
  Report Type: 
  Country: None (occurrence: None)
  Receive Date: 20091214
  Receipt Date: 20091207
  Transmission Date: 20100525
  Serious: Yes (Hospitalization)
  Sender: FDA-Public Use
  Company Number: FR-BRISTOL-MYERS SQUIBB COMPANY-14886899

PATIENT
  Age: 26 Year
  Sex: Male

DRUGS (3)
  1. ABILIFY [Suspect]
     Indication: SCHIZOPHRENIA
     Dosage: STARTED WITH 5MG; DOSE INCREASED TO 10MG DAILY.
     Dates: start: 20091130
  2. LOXAPAC [Concomitant]
     Dates: start: 20091130
  3. DEROXAT [Concomitant]

REACTIONS (2)
  - PSYCHOTIC DISORDER [None]
  - TACHYCARDIA [None]
